FAERS Safety Report 24296617 (Version 1)
Quarter: 2024Q3

REPORT INFORMATION
  Report Type: Spontaneous
  Country: FR (occurrence: FR)
  Receive Date: 20240909
  Receipt Date: 20240909
  Transmission Date: 20241016
  Serious: Yes (Hospitalization)
  Sender: CHEPLAPHARM
  Company Number: None

PATIENT
  Age: 65 Year
  Sex: Female

DRUGS (5)
  1. CAPECITABINE [Suspect]
     Active Substance: CAPECITABINE
     Indication: Triple negative breast cancer
     Dates: start: 202307, end: 202402
  2. CAPECITABINE [Suspect]
     Active Substance: CAPECITABINE
     Indication: Triple negative breast cancer
     Route: 048
     Dates: start: 202404, end: 20240705
  3. KEYTRUDA [Suspect]
     Active Substance: PEMBROLIZUMAB
     Indication: Triple negative breast cancer
     Route: 042
     Dates: start: 202307, end: 20240705
  4. CARBOPLATIN [Suspect]
     Active Substance: CARBOPLATIN
     Dosage: 4 SESSIONS
     Dates: start: 202307, end: 202402
  5. PACLITAXEL [Suspect]
     Active Substance: PACLITAXEL
     Dosage: 12 SESSIONS
     Dates: start: 202307, end: 202402

REACTIONS (2)
  - Lichenoid keratosis [Not Recovered/Not Resolved]
  - Palmar-plantar erythrodysaesthesia syndrome [Not Recovered/Not Resolved]

NARRATIVE: CASE EVENT DATE: 20240601
